FAERS Safety Report 20586538 (Version 1)
Quarter: 2022Q1

REPORT INFORMATION
  Report Type: Spontaneous
  Country: US (occurrence: US)
  Receive Date: 20220313
  Receipt Date: 20220313
  Transmission Date: 20220423
  Serious: No
  Sender: FDA-Public Use
  Company Number: US-BoehringerIngelheim-2022-BI-157732

PATIENT
  Age: 44 Year
  Sex: Male
  Weight: 65.7 kg

DRUGS (11)
  1. MELOXICAM [Suspect]
     Active Substance: MELOXICAM
     Indication: Migraine
     Route: 048
     Dates: start: 20220218
  2. DULOXETINE [Suspect]
     Active Substance: DULOXETINE
     Indication: Product used for unknown indication
  3. TYLENOL [Suspect]
     Active Substance: ACETAMINOPHEN
     Indication: Product used for unknown indication
  4. CODEINE [Suspect]
     Active Substance: CODEINE
     Indication: Product used for unknown indication
  5. GABAPENTIN [Suspect]
     Active Substance: GABAPENTIN
     Indication: Product used for unknown indication
  6. CYCLOBENZAPRINE [Suspect]
     Active Substance: CYCLOBENZAPRINE
     Indication: Product used for unknown indication
  7. PREGABALIN [Suspect]
     Active Substance: PREGABALIN
     Indication: Product used for unknown indication
  8. SUMATRIPTAN [Suspect]
     Active Substance: SUMATRIPTAN
     Indication: Product used for unknown indication
  9. NORTRIPTYLINE [Suspect]
     Active Substance: NORTRIPTYLINE
     Indication: Product used for unknown indication
  10. PREDNISONE [Suspect]
     Active Substance: PREDNISONE
     Indication: Product used for unknown indication
  11. NURTEC ODT [Suspect]
     Active Substance: RIMEGEPANT SULFATE
     Indication: Migraine
     Route: 048
     Dates: start: 20220218

REACTIONS (28)
  - Therapeutic response delayed [Unknown]
  - Sedation [Not Recovered/Not Resolved]
  - Vision blurred [Not Recovered/Not Resolved]
  - Drug ineffective [Not Recovered/Not Resolved]
  - Eye pain [Not Recovered/Not Resolved]
  - Dizziness [Not Recovered/Not Resolved]
  - Nervous system disorder [Unknown]
  - Anxiety [Unknown]
  - Stress [Unknown]
  - Nightmare [Unknown]
  - Feeling abnormal [Unknown]
  - Dyskinesia [Unknown]
  - Tic [Unknown]
  - Ear discomfort [Unknown]
  - Disturbance in attention [Unknown]
  - Psychomotor hyperactivity [Unknown]
  - Nausea [Unknown]
  - Tinnitus [Unknown]
  - Fatigue [Unknown]
  - Depression [Unknown]
  - Irritability [Unknown]
  - Slow speech [Unknown]
  - Micturition disorder [Unknown]
  - Vomiting [Unknown]
  - Constipation [Unknown]
  - Memory impairment [Unknown]
  - Mania [Unknown]
  - Rash [Unknown]

NARRATIVE: CASE EVENT DATE: 20220218
